FAERS Safety Report 18587046 (Version 2)
Quarter: 2020Q4

REPORT INFORMATION
  Report Type: Report from Study
  Country: US (occurrence: US)
  Receive Date: 20201207
  Receipt Date: 20201209
  Transmission Date: 20210114
  Serious: Yes (Death, Hospitalization, Other)
  Sender: FDA-Public Use
  Company Number: US-GLAXOSMITHKLINE-US2020AMR240798

PATIENT
  Age: 80 Year
  Sex: Female

DRUGS (1)
  1. BELANTAMAB MAFODOTIN. [Suspect]
     Active Substance: BELANTAMAB MAFODOTIN
     Indication: PLASMA CELL MYELOMA
     Dosage: 120 MG
     Dates: start: 20200921

REACTIONS (9)
  - Hospitalisation [Unknown]
  - Pyrexia [Unknown]
  - Vomiting [Unknown]
  - Feeling cold [Unknown]
  - Nausea [Unknown]
  - Tremor [Unknown]
  - Dyspnoea [Unknown]
  - Chills [Unknown]
  - Death [Fatal]

NARRATIVE: CASE EVENT DATE: 20200921
